FAERS Safety Report 5843727-7 (Version None)
Quarter: 2008Q3

REPORT INFORMATION
  Report Type: 
  Country: None (occurrence: None)
  Receive Date: 20080813
  Receipt Date: 20080507
  Transmission Date: 20090109
  Serious: No
  Sender: FDA-Public Use
  Company Number: US-BRISTOL-MYERS SQUIBB COMPANY-14183768

PATIENT
  Sex: Female

DRUGS (4)
  1. IXEMPRA KIT [Suspect]
     Indication: BREAST CANCER METASTATIC
     Dates: start: 20080401
  2. XELODA [Concomitant]
  3. H1 ANTAGONIST [Concomitant]
     Indication: PREMEDICATION
  4. H2 ANTAGONIST [Concomitant]
     Indication: PREMEDICATION

REACTIONS (2)
  - RASH [None]
  - URTICARIA [None]
